FAERS Safety Report 24883601 (Version 1)
Quarter: 2025Q1

REPORT INFORMATION
  Report Type: Spontaneous
  Country: US (occurrence: None)
  Receive Date: 20250124
  Receipt Date: 20250124
  Transmission Date: 20250409
  Serious: No
  Sender: FDA-CTU
  Company Number: None

PATIENT
  Sex: Male

DRUGS (3)
  1. XGEVA [Suspect]
     Active Substance: DENOSUMAB
     Indication: Prostate cancer
     Dosage: FREQUENCY : MONTHLY;?
     Route: 058
     Dates: start: 202404
  2. ABIRATERONE [Suspect]
     Active Substance: ABIRATERONE
  3. ELIGARD [Concomitant]
     Active Substance: LEUPROLIDE ACETATE

REACTIONS (9)
  - Hot flush [None]
  - Hyperhidrosis [None]
  - Nausea [None]
  - Presyncope [None]
  - Alopecia [None]
  - Abdominal distension [None]
  - Abdominal distension [None]
  - Weight increased [None]
  - Brain fog [None]

NARRATIVE: CASE EVENT DATE: 20250107
